FAERS Safety Report 9354780 (Version 1)
Quarter: 2013Q2

REPORT INFORMATION
  Report Type: Spontaneous
  Country: FR (occurrence: FR)
  Receive Date: 20130619
  Receipt Date: 20130619
  Transmission Date: 20140414
  Serious: Yes (Hospitalization, Other)
  Sender: FDA-Public Use
  Company Number: FR-ROCHE-1234998

PATIENT
  Age: 34 Year
  Sex: Female
  Weight: 50 kg

DRUGS (2)
  1. ZELBORAF [Suspect]
     Indication: METASTATIC MALIGNANT MELANOMA
     Route: 048
     Dates: start: 20130605, end: 20130610
  2. METOCLOPRAMIDE [Concomitant]

REACTIONS (4)
  - Diarrhoea [Recovering/Resolving]
  - Headache [Unknown]
  - Tinnitus [Unknown]
  - Nausea [Unknown]
